FAERS Safety Report 4755285-9 (Version None)
Quarter: 2005Q3

REPORT INFORMATION
  Report Type: 
  Country: None (occurrence: None)
  Receive Date: 20050829
  Receipt Date: 20050422
  Transmission Date: 20060218
  Serious: Yes (Hospitalization, Disabling)
  Sender: FDA-Public Use
  Company Number: US-MERCK-0504USA04191

PATIENT
  Age: 62 Year
  Sex: Male
  Weight: 80 kg

DRUGS (18)
  1. VIOXX [Suspect]
     Indication: ARTHRITIS
     Route: 048
     Dates: start: 20010412, end: 20041001
  2. AMBIEN [Concomitant]
     Route: 065
  3. VIAGRA [Concomitant]
     Route: 065
  4. MONOPRIL [Concomitant]
     Indication: HYPERTENSION
     Route: 048
     Dates: start: 19990101
  5. CALAN [Concomitant]
     Route: 065
  6. CELEXA [Concomitant]
     Route: 065
  7. LORTAB [Concomitant]
     Route: 065
  8. PLAQUENIL [Concomitant]
     Route: 065
  9. DARVOCET-N 100 [Concomitant]
     Route: 065
  10. REMICADE [Concomitant]
     Route: 065
  11. XANAX [Concomitant]
     Route: 065
  12. NEXIUM [Concomitant]
     Route: 065
  13. PROCARDIA XL [Concomitant]
     Indication: HYPERTENSION
     Route: 048
     Dates: start: 20020404
  14. DIURETIC (UNSPECIFIED) [Concomitant]
     Indication: HYPERTENSION
     Route: 048
     Dates: start: 20000101
  15. ASPIRIN [Concomitant]
     Indication: ISCHAEMIC HEART DISEASE PROPHYLAXIS
     Route: 048
     Dates: start: 19990101
  16. ASPIRIN [Concomitant]
     Route: 048
     Dates: start: 20030101
  17. METHOTREXATE [Concomitant]
     Indication: RHEUMATOID ARTHRITIS
     Route: 048
     Dates: start: 20010701, end: 20040801
  18. PREDNISONE [Concomitant]
     Route: 065

REACTIONS (38)
  - ACCIDENT AT WORK [None]
  - ADRENAL MASS [None]
  - ADVERSE EVENT [None]
  - ANXIETY [None]
  - ASTHENIA [None]
  - BLOOD PRESSURE INCREASED [None]
  - CARPAL TUNNEL SYNDROME [None]
  - CHEST DISCOMFORT [None]
  - CHRONIC FATIGUE SYNDROME [None]
  - CONTUSION [None]
  - CORONARY ARTERY DISEASE [None]
  - CORONARY ARTERY RESTENOSIS [None]
  - DEPRESSION [None]
  - DIZZINESS [None]
  - DYSARTHRIA [None]
  - DYSURIA [None]
  - ERYTHEMA [None]
  - EXCORIATION [None]
  - FATIGUE [None]
  - GASTROOESOPHAGEAL REFLUX DISEASE [None]
  - HAEMANGIOMA OF LIVER [None]
  - HAEMATOMA [None]
  - HYPERLIPIDAEMIA [None]
  - HYPONATRAEMIA [None]
  - JOINT SWELLING [None]
  - LOCALISED INFECTION [None]
  - MYOCARDIAL INFARCTION [None]
  - NASAL CONGESTION [None]
  - OEDEMA PERIPHERAL [None]
  - PAIN [None]
  - RASH [None]
  - RAYNAUD'S PHENOMENON [None]
  - RENAL CYST [None]
  - RENAL FAILURE [None]
  - SINUS BRADYCARDIA [None]
  - VIRAL LABYRINTHITIS [None]
  - VISION BLURRED [None]
  - VOMITING [None]
